FAERS Safety Report 8252293-0 (Version None)
Quarter: 2012Q2

REPORT INFORMATION
  Report Type: 
  Country: None (occurrence: None)
  Receive Date: 20120402
  Receipt Date: 20110930
  Transmission Date: 20120825
  Serious: No
  Sender: FDA-Public Use
  Company Number: US-ABBOTT-11P-163-0860991-00

PATIENT
  Age: 60 Year
  Sex: Male
  Weight: 71.732 kg

DRUGS (2)
  1. ANDROGEL [Suspect]
     Dosage: PACKETS
     Dates: start: 20101101
  2. ANDROGEL [Suspect]
     Indication: BLOOD TESTOSTERONE DECREASED
     Dosage: PACKETS
     Dates: start: 20080101, end: 20100101

REACTIONS (3)
  - RASH [None]
  - BLOOD TESTOSTERONE DECREASED [None]
  - DRY SKIN [None]
